FAERS Safety Report 24317801 (Version 1)
Quarter: 2024Q3

REPORT INFORMATION
  Report Type: Spontaneous
  Country: US (occurrence: US)
  Receive Date: 20240913
  Receipt Date: 20240913
  Transmission Date: 20241016
  Serious: No
  Sender: MERZ
  Company Number: US-MRZWEB-2024080000257

PATIENT
  Sex: Female

DRUGS (3)
  1. XEOMIN [Suspect]
     Active Substance: INCOBOTULINUMTOXINA
     Indication: Product used for unknown indication
     Dosage: 57 025
     Dates: start: 20240718, end: 20240718
  2. XEOMIN [Suspect]
     Active Substance: INCOBOTULINUMTOXINA
     Dosage: 57 025
     Dates: start: 20240801, end: 20240801
  3. JEUVEAU [Concomitant]
     Active Substance: PRABOTULINUMTOXINA-XVFS
     Dates: start: 20240814, end: 20240814

REACTIONS (1)
  - Drug ineffective [Unknown]

NARRATIVE: CASE EVENT DATE: 20240101
